FAERS Safety Report 12732819 (Version 1)
Quarter: 2016Q3

REPORT INFORMATION
  Report Type: Report from Study
  Country: TR (occurrence: TR)
  Receive Date: 20160912
  Receipt Date: 20160912
  Transmission Date: 20161109
  Serious: Yes (Other)
  Sender: FDA-Public Use
  Company Number: TR-MYLANLABS-2016M1038369

PATIENT

DRUGS (2)
  1. OXYBUTYNIN [Suspect]
     Active Substance: OXYBUTYNIN
     Indication: PRODUCT USED FOR UNKNOWN INDICATION
     Dosage: 1-2 TABLETS A DAY
     Route: 065
  2. OXYBUTYNIN [Suspect]
     Active Substance: OXYBUTYNIN
     Dosage: 20-30 TABLETS A DAY (100-150MG)
     Route: 065

REACTIONS (13)
  - Withdrawal syndrome [Unknown]
  - Dry mouth [Unknown]
  - Intentional overdose [Unknown]
  - Drug abuse [Unknown]
  - Anxiety [Unknown]
  - Insomnia [Unknown]
  - Urinary retention [Unknown]
  - Boredom [Unknown]
  - Hyperhidrosis [Unknown]
  - Agitation [Unknown]
  - Tension [Unknown]
  - Drug dependence [Unknown]
  - Constipation [Unknown]
